FAERS Safety Report 9459044 (Version 2)
Quarter: 2013Q3

REPORT INFORMATION
  Report Type: Spontaneous
  Country: US (occurrence: US)
  Receive Date: 20130814
  Receipt Date: 20130927
  Transmission Date: 20140515
  Serious: Yes (Other)
  Sender: FDA-Public Use
  Company Number: US-TEVA-425142USA

PATIENT
  Age: 53 Year
  Sex: Female
  Weight: 60.38 kg

DRUGS (2)
  1. PARAGARD 380A [Suspect]
     Indication: CONTRACEPTION
     Route: 015
     Dates: start: 20050131, end: 20130807
  2. LISINOPRIL [Concomitant]
     Indication: HYPERTENSION

REACTIONS (7)
  - Device dislocation [Recovered/Resolved]
  - Medical device complication [Not Recovered/Not Resolved]
  - Back pain [Unknown]
  - Abdominal pain [Unknown]
  - Device breakage [Not Recovered/Not Resolved]
  - Pelvic pain [Recovering/Resolving]
  - Pelvic discomfort [Recovering/Resolving]
